FAERS Safety Report 10100478 (Version 1)
Quarter: 2014Q2

REPORT INFORMATION
  Report Type: Spontaneous
  Country: JP (occurrence: JP)
  Receive Date: 20140423
  Receipt Date: 20140423
  Transmission Date: 20141212
  Serious: Yes (Hospitalization)
  Sender: FDA-Public Use
  Company Number: JP-EISAI INC-E7389-04995-SPO-JP

PATIENT
  Age: 38 Year
  Sex: Female

DRUGS (11)
  1. HALAVEN [Suspect]
     Indication: BREAST CANCER RECURRENT
     Dosage: 1.4 MG/M2
     Route: 041
     Dates: start: 20120306, end: 20120306
  2. HALAVEN [Suspect]
     Dosage: 1.1 MG/M2
     Route: 041
     Dates: start: 20120403
  3. PRIMPERAN [Concomitant]
     Route: 048
  4. THEOLONG [Concomitant]
     Route: 048
  5. ADELAVIN-NO.9 [Concomitant]
     Route: 042
  6. LOXONIN [Concomitant]
     Route: 048
  7. OXYCONTIN [Concomitant]
     Route: 048
  8. MUCOSTA [Concomitant]
     Route: 048
  9. MEROPENEM [Concomitant]
     Dates: start: 20120312
  10. GRAN [Concomitant]
     Dates: start: 20120312
  11. PRODIF [Concomitant]
     Dates: start: 20120314

REACTIONS (1)
  - Disseminated intravascular coagulation [Recovered/Resolved]
